FAERS Safety Report 8984083 (Version 1)
Quarter: 2012Q4

REPORT INFORMATION
  Report Type: Spontaneous
  Country: IT (occurrence: None)
  Receive Date: 20121214
  Receipt Date: 20121214
  Transmission Date: 20130627
  Serious: Yes (Other)
  Sender: FDA-Public Use
  Company Number: DSA_61149_2012

PATIENT
  Age: 84 Year
  Sex: Female

DRUGS (2)
  1. ENAPREN [Suspect]
     Indication: HYPERTENSION
     Route: 048
     Dates: start: 20110819, end: 20120818
  2. PARACETAMOL [Concomitant]

REACTIONS (2)
  - Hypotension [None]
  - Electrocardiogram QRS complex abnormal [None]
